FAERS Safety Report 13360825 (Version 2)
Quarter: 2017Q2

REPORT INFORMATION
  Report Type: Spontaneous
  Country: US (occurrence: US)
  Receive Date: 20170322
  Receipt Date: 20170616
  Transmission Date: 20170830
  Serious: No
  Sender: FDA-Public Use
  Company Number: US-ALLERGAN-1702282US

PATIENT
  Age: 30 Year
  Sex: Female
  Weight: 49.89 kg

DRUGS (3)
  1. BETADINE [Concomitant]
     Active Substance: POVIDONE-IODINE
     Dosage: UNK
  2. RECLIPSEN [Concomitant]
     Active Substance: DESOGESTREL\ETHINYL ESTRADIOL
     Dosage: UNK
     Route: 048
  3. LILETTA [Suspect]
     Active Substance: LEVONORGESTREL
     Indication: PRODUCT USED FOR UNKNOWN INDICATION
     Dosage: 52 MG
     Route: 015
     Dates: start: 20170117, end: 20170117

REACTIONS (1)
  - Uterine spasm [Unknown]

NARRATIVE: CASE EVENT DATE: 20170117
